FAERS Safety Report 17270692 (Version 2)
Quarter: 2020Q1

REPORT INFORMATION
  Report Type: Spontaneous
  Country: US (occurrence: US)
  Receive Date: 20200114
  Receipt Date: 20200320
  Transmission Date: 20200409
  Serious: Yes (Death, Hospitalization, Other)
  Sender: FDA-Public Use
  Company Number: US-009507513-2001USA004096

PATIENT
  Sex: Female
  Weight: 48.9 kg

DRUGS (1)
  1. JANUVIA [Suspect]
     Active Substance: SITAGLIPTIN PHOSPHATE
     Indication: TYPE 2 DIABETES MELLITUS
     Dosage: 100 MILLIGRAM, ONCE DAILY
     Route: 048
     Dates: start: 20140220, end: 20140926

REACTIONS (12)
  - Death [Fatal]
  - Acute kidney injury [Not Recovered/Not Resolved]
  - Vision blurred [Recovered/Resolved]
  - Renal failure [Unknown]
  - Liver function test abnormal [Unknown]
  - Abdominal pain [Not Recovered/Not Resolved]
  - Thrombotic thrombocytopenic purpura [Unknown]
  - Pancreatic carcinoma [Not Recovered/Not Resolved]
  - Haematochezia [Unknown]
  - Abnormal loss of weight [Not Recovered/Not Resolved]
  - Hepatorenal syndrome [Unknown]
  - Diarrhoea [Unknown]

NARRATIVE: CASE EVENT DATE: 2014
